FAERS Safety Report 8102988-4 (Version None)
Quarter: 2012Q1

REPORT INFORMATION
  Report Type: 
  Country: None (occurrence: None)
  Receive Date: 20120127
  Receipt Date: 20120111
  Transmission Date: 20120608
  Serious: Yes (Other)
  Sender: FDA-Public Use
  Company Number: 1160577

PATIENT
  Age: 30 Year
  Sex: Female

DRUGS (2)
  1. PACLITAXEL [Suspect]
     Indication: UTERINE CANCER
     Dosage: 53 MG, CYCLIC, INTRAVENOUS DRIP
     Route: 041
     Dates: start: 20120111, end: 20120111
  2. (PRONTO PLATAMINE) [Concomitant]

REACTIONS (2)
  - ERYTHEMA [None]
  - DYSPNOEA [None]
